FAERS Safety Report 4643885-6 (Version None)
Quarter: 2005Q2

REPORT INFORMATION
  Report Type: 
  Country: None (occurrence: None)
  Receive Date: 20050421
  Receipt Date: 20050412
  Transmission Date: 20051028
  Serious: Yes (Other)
  Sender: FDA-Public Use
  Company Number: 2005057490

PATIENT
  Age: 29 Year
  Sex: Female
  Weight: 77.1115 kg

DRUGS (1)
  1. UNISOM [Suspect]
     Indication: INSOMNIA
     Dosage: 28 SLEEPGELS ONCE, ORAL
     Route: 048
     Dates: start: 20050412, end: 20050412

REACTIONS (3)
  - HALLUCINATION [None]
  - MALAISE [None]
  - OVERDOSE [None]
